FAERS Safety Report 17684914 (Version 1)
Quarter: 2020Q2

REPORT INFORMATION
  Report Type: Spontaneous
  Country: US (occurrence: US)
  Receive Date: 20200418
  Receipt Date: 20200418
  Transmission Date: 20200714
  Serious: Yes (Life-Threatening, Hospitalization, Disabling, Other)
  Sender: FDA-Public Use
  Company Number: None

PATIENT
  Age: 19 Year
  Sex: Female
  Weight: 68.04 kg

DRUGS (1)
  1. NEXPLANON [Suspect]
     Active Substance: ETONOGESTREL
     Dates: start: 20200315, end: 20200415

REACTIONS (6)
  - Headache [None]
  - Crying [None]
  - Decreased appetite [None]
  - Affect lability [None]
  - Hallucination [None]
  - Disturbance in attention [None]

NARRATIVE: CASE EVENT DATE: 20200412
